FAERS Safety Report 9624750 (Version 2)
Quarter: 2013Q4

REPORT INFORMATION
  Report Type: Report from Study
  Country: CH (occurrence: CH)
  Receive Date: 20131015
  Receipt Date: 20131106
  Transmission Date: 20140711
  Serious: Yes (Death)
  Sender: FDA-Public Use
  Company Number: CH-ROCHE-1289308

PATIENT
  Age: 59 Year
  Sex: Male

DRUGS (4)
  1. ALTEPLASE [Suspect]
     Indication: PULMONARY EMBOLISM
     Route: 040
  2. ALTEPLASE [Suspect]
     Route: 042
  3. HEPARIN SODIUM [Suspect]
     Indication: PULMONARY EMBOLISM
     Dosage: ONE DOSE
     Route: 042
  4. HEPARIN SODIUM [Suspect]
     Dosage: BOLUSES TO OBTAIN AN ACTIVATED CLOTTING TIME OF CA. 300 SEC
     Route: 040

REACTIONS (2)
  - Right ventricular failure [Fatal]
  - Drug ineffective [Fatal]
